FAERS Safety Report 10712256 (Version 2)
Quarter: 2015Q1

REPORT INFORMATION
  Report Type: Spontaneous
  Country: DE (occurrence: DE)
  Receive Date: 20150114
  Receipt Date: 20150310
  Transmission Date: 20150721
  Serious: Yes (Hospitalization)
  Sender: FDA-Public Use
  Company Number: DE-ABBVIE-15K-062-1331979-00

PATIENT
  Age: 45 Year
  Sex: Male

DRUGS (1)
  1. HUMIRA [Suspect]
     Active Substance: ADALIMUMAB
     Indication: ANKYLOSING SPONDYLITIS
     Route: 065

REACTIONS (8)
  - Platelet count increased [Unknown]
  - Cholestasis [Not Recovered/Not Resolved]
  - White blood cell count increased [Unknown]
  - Hepatotoxicity [Recovering/Resolving]
  - Chromaturia [Recovering/Resolving]
  - Ocular icterus [Recovering/Resolving]
  - Pruritus [Recovering/Resolving]
  - General physical health deterioration [Recovering/Resolving]

NARRATIVE: CASE EVENT DATE: 20141124
